FAERS Safety Report 5229612-2 (Version None)
Quarter: 2007Q1

REPORT INFORMATION
  Report Type: 
  Country: None (occurrence: None)
  Receive Date: 20070201
  Receipt Date: 20070118
  Transmission Date: 20070707
  Serious: Yes (Death, Hospitalization)
  Sender: FDA-Public Use
  Company Number: AZAUS200600442

PATIENT
  Age: 79 Year
  Sex: Male
  Weight: 63.5036 kg

DRUGS (6)
  1. VIDAZA [Suspect]
     Indication: MYELODYSPLASTIC SYNDROME
     Dosage: 75 MG/M2 (130 MG, DAILY X 7 DAYS), SUBCUTANEOUS
     Route: 058
     Dates: start: 20060103, end: 20060111
  2. COUMADIN [Concomitant]
  3. LIPITOR [Concomitant]
  4. DIGITEX (DIGOXIN) [Concomitant]
  5. ATACAND [Concomitant]
  6. ARANESP [Concomitant]

REACTIONS (15)
  - COMA [None]
  - DIALYSIS [None]
  - DRUG TOXICITY [None]
  - GENERAL PHYSICAL HEALTH DETERIORATION [None]
  - HAEMOGLOBIN DECREASED [None]
  - HAEMORRHAGE [None]
  - HYPOTENSION [None]
  - LEUKOPENIA [None]
  - PNEUMONIA [None]
  - RENAL FAILURE ACUTE [None]
  - SEPSIS [None]
  - SHOCK [None]
  - THROMBOCYTOPENIA [None]
  - TRANSFUSION REACTION [None]
  - UROSEPSIS [None]
